FAERS Safety Report 9381698 (Version 4)
Quarter: 2013Q3

REPORT INFORMATION
  Report Type: Spontaneous
  Country: US (occurrence: US)
  Receive Date: 20130703
  Receipt Date: 20130726
  Transmission Date: 20140515
  Serious: Yes (Hospitalization)
  Sender: FDA-Public Use
  Company Number: US-JNJFOC-20130617885

PATIENT
  Age: 50 Year
  Sex: Male

DRUGS (7)
  1. XARELTO [Suspect]
     Indication: CEREBROVASCULAR ACCIDENT PROPHYLAXIS
     Route: 048
     Dates: start: 201306, end: 20130622
  2. XARELTO [Suspect]
     Indication: ATRIAL FIBRILLATION
     Route: 048
     Dates: start: 201306, end: 20130622
  3. LISINOPRIL [Concomitant]
     Route: 065
  4. CARVEDILOL [Concomitant]
     Route: 065
  5. LASIX [Concomitant]
     Route: 065
  6. SIMVASTATIN [Concomitant]
     Route: 065
  7. COLCHICINE [Concomitant]
     Route: 065

REACTIONS (6)
  - Retroperitoneal haemorrhage [Unknown]
  - Perirenal haematoma [Unknown]
  - Haemoglobin decreased [Unknown]
  - Hypotension [Unknown]
  - Back pain [Unknown]
  - Inappropriate schedule of drug administration [Recovered/Resolved]
